FAERS Safety Report 20344262 (Version 1)
Quarter: 2022Q1

REPORT INFORMATION
  Report Type: Spontaneous
  Country: US (occurrence: US)
  Receive Date: 20220118
  Receipt Date: 20220118
  Transmission Date: 20220423
  Serious: Yes (Death, Other)
  Sender: FDA-Public Use
  Company Number: US-AMGEN-USASP2022002500

PATIENT

DRUGS (2)
  1. RITUXIMAB [Suspect]
     Active Substance: RITUXIMAB
     Indication: Post transplant lymphoproliferative disorder
     Dosage: UNK
     Route: 065
  2. POLATUZUMAB VEDOTIN [Concomitant]
     Active Substance: POLATUZUMAB VEDOTIN
     Indication: Post transplant lymphoproliferative disorder

REACTIONS (7)
  - Encephalopathy [Fatal]
  - Post transplant lymphoproliferative disorder [Fatal]
  - Pneumonia [Fatal]
  - Sepsis [Fatal]
  - Immune effector cell-associated neurotoxicity syndrome [Unknown]
  - Transplant rejection [Unknown]
  - Cytokine release syndrome [Unknown]
